FAERS Safety Report 23292403 (Version 1)
Quarter: 2023Q4

REPORT INFORMATION
  Report Type: Spontaneous
  Country: None (occurrence: US)
  Receive Date: 20231213
  Receipt Date: 20231213
  Transmission Date: 20240109
  Serious: No
  Sender: FDA-Public Use
  Company Number: US-Harrow Eye-2149289

PATIENT
  Age: 14 Year
  Sex: Female

DRUGS (12)
  1. TOBRAMYCIN [Suspect]
     Active Substance: TOBRAMYCIN
     Indication: Product used for unknown indication
  2. CLOFAZIMINE [Suspect]
     Active Substance: CLOFAZIMINE
  3. AMIKACIN [Suspect]
     Active Substance: AMIKACIN
  4. LINEZOLID [Suspect]
     Active Substance: LINEZOLID
  5. LINEZOLID [Suspect]
     Active Substance: LINEZOLID
     Route: 048
     Dates: start: 20230303
  6. CEFOXITIN [Suspect]
     Active Substance: CEFOXITIN SODIUM
  7. CLARITHROMYCIN [Suspect]
     Active Substance: CLARITHROMYCIN
  8. CIPROFLOXACIN [Suspect]
     Active Substance: CIPROFLOXACIN
  9. DOXYCYCLINE [Suspect]
     Active Substance: DOXYCYCLINE
  10. MOXIFLOXACIN [Suspect]
     Active Substance: MOXIFLOXACIN
  11. SULFAMETHOXAZOLE AND TRIMETHOPRIM [Suspect]
     Active Substance: SULFAMETHOXAZOLE\TRIMETHOPRIM
  12. IMIPENEM AND CILASTATIN [Concomitant]
     Active Substance: CILASTATIN SODIUM\IMIPENEM
     Route: 042
     Dates: start: 20230303

REACTIONS (1)
  - Multiple-drug resistance [Unknown]
